FAERS Safety Report 19920475 (Version 1)
Quarter: 2021Q4

REPORT INFORMATION
  Report Type: Report from Study
  Country: US (occurrence: US)
  Receive Date: 20211005
  Receipt Date: 20211005
  Transmission Date: 20220303
  Serious: Yes (Other)
  Sender: FDA-Public Use
  Company Number: US-TAIHO ONCOLOGY INC-EU-2021-01053

PATIENT
  Age: 66 Year
  Sex: Male
  Weight: 102 kg

DRUGS (16)
  1. LONSURF [Suspect]
     Active Substance: TIPIRACIL HYDROCHLORIDE\TRIFLURIDINE
     Indication: Colon cancer
     Dosage: CYCLE 1
     Route: 048
     Dates: start: 20210324
  2. LONSURF [Suspect]
     Active Substance: TIPIRACIL HYDROCHLORIDE\TRIFLURIDINE
     Indication: Carcinoid tumour
     Dosage: DOSE, FREQUENCY AND CURRENT CYCLE UNKNOWN
     Route: 048
     Dates: start: 20210504
  3. BAYER LOW [Concomitant]
  4. FISH OIL [Concomitant]
     Active Substance: FISH OIL
  5. GABAPENTIN [Concomitant]
     Active Substance: GABAPENTIN
  6. IRON [Concomitant]
     Active Substance: IRON
  7. LISINOPRIL [Concomitant]
     Active Substance: LISINOPRIL
  8. LOPERAMIDE [Concomitant]
     Active Substance: LOPERAMIDE
  9. MAGNESIUM [Concomitant]
     Active Substance: MAGNESIUM
  10. ACETAMINOPHEN\OXYCODONE HYDROCHLORIDE [Concomitant]
     Active Substance: ACETAMINOPHEN\OXYCODONE HYDROCHLORIDE
  11. POT CL MICRO [Concomitant]
  12. PROCHLORPERAZINE [Concomitant]
     Active Substance: PROCHLORPERAZINE
  13. VITAMIN C [Concomitant]
     Active Substance: ASCORBIC ACID
  14. VITAMIN D3 [Concomitant]
     Active Substance: CHOLECALCIFEROL
  15. WARFARIN [Concomitant]
     Active Substance: WARFARIN
  16. OXYCODONE [Concomitant]
     Active Substance: OXYCODONE

REACTIONS (7)
  - Stent placement [Unknown]
  - International normalised ratio increased [Unknown]
  - Fatigue [Not Recovered/Not Resolved]
  - White blood cell count decreased [Unknown]
  - Pyrexia [Recovered/Resolved]
  - Platelet count decreased [Unknown]
  - Inappropriate schedule of product administration [Unknown]

NARRATIVE: CASE EVENT DATE: 20210101
